FAERS Safety Report 9978252 (Version 1)
Quarter: 2014Q1

REPORT INFORMATION
  Report Type: Report from Study
  Country: US (occurrence: US)
  Receive Date: 20140306
  Receipt Date: 20140306
  Transmission Date: 20141002
  Serious: No
  Sender: FDA-Public Use
  Company Number: US-ABBVIE-13P-163-1170758-00

PATIENT
  Age: 69 Year
  Sex: Female

DRUGS (11)
  1. HUMIRA [Suspect]
     Indication: RHEUMATOID ARTHRITIS
     Dates: start: 201310
  2. SYNTHROID [Concomitant]
     Indication: HYPOTHYROIDISM
  3. FLONASE [Concomitant]
     Indication: HYPERSENSITIVITY
  4. ATROVENT [Concomitant]
     Indication: HYPERSENSITIVITY
  5. TRIAMTERENE/HCTZ [Concomitant]
     Indication: HYPERTENSION
     Dosage: 37/25
  6. HCTZ [Concomitant]
     Indication: HYPERTENSION
  7. ASA [Concomitant]
     Indication: PROPHYLAXIS
     Dosage: LOW DOSE
  8. SYSTANE [Concomitant]
     Indication: DRY EYE
  9. SUPPLEMENTS SITRACAL+ VITAMIN D [Concomitant]
     Indication: PRODUCT USED FOR UNKNOWN INDICATION
  10. FISH OIL [Concomitant]
     Indication: PRODUCT USED FOR UNKNOWN INDICATION
  11. CENTRUM SILVER [Concomitant]
     Indication: PRODUCT USED FOR UNKNOWN INDICATION

REACTIONS (2)
  - Joint stiffness [Not Recovered/Not Resolved]
  - Drug ineffective [Unknown]
